FAERS Safety Report 9057936 (Version 1)
Quarter: 2013Q1

REPORT INFORMATION
  Report Type: Spontaneous
  Country: NL (occurrence: NL)
  Receive Date: 20130210
  Receipt Date: 20130210
  Transmission Date: 20140127
  Serious: Yes (Other)
  Sender: FDA-Public Use
  Company Number: NL-TEVA-383468ISR

PATIENT
  Age: 40 None
  Sex: Female
  Weight: 80 kg

DRUGS (5)
  1. AMOXICILLINE [Suspect]
     Indication: RESPIRATORY TRACT INFECTION
     Route: 048
     Dates: start: 20121205
  2. MARVELON TABLET [Concomitant]
     Route: 048
     Dates: start: 2008
  3. METOPROLOL TABLET MGA 100MG (SUCCINAAT) [Concomitant]
     Route: 048
     Dates: start: 2011
  4. AMLODIPINE TABLET  5MG (MALEAAT) [Concomitant]
     Route: 048
     Dates: start: 2011
  5. LOSARTAN/HYDROCHLOORTHIAZIDE TAB OMHULD 100/25MG [Concomitant]
     Route: 048
     Dates: start: 2011

REACTIONS (2)
  - Dyspnoea [Recovered/Resolved]
  - Erythema [Recovered/Resolved]
